FAERS Safety Report 7253006-1 (Version None)
Quarter: 2011Q1

REPORT INFORMATION
  Report Type: 
  Country: None (occurrence: None)
  Receive Date: 20110129
  Receipt Date: 20100121
  Transmission Date: 20110831
  Serious: No
  Sender: FDA-Public Use
  Company Number: US-ABBOTT-10P-163-0622228-00

PATIENT
  Age: 45 Year
  Sex: Male

DRUGS (2)
  1. PSORITANE [Concomitant]
     Indication: PRODUCT USED FOR UNKNOWN INDICATION
  2. HUMIRA [Suspect]
     Indication: PITYRIASIS RUBRA PILARIS
     Dosage: 4TH DOSE TAKEN 12 JAN 2010
     Dates: start: 20091201

REACTIONS (1)
  - VIITH NERVE PARALYSIS [None]
